FAERS Safety Report 7990980-X (Version None)
Quarter: 2011Q4

REPORT INFORMATION
  Report Type: 
  Country: None (occurrence: None)
  Receive Date: 20111219
  Receipt Date: 20111206
  Transmission Date: 20120403
  Serious: Yes (Other)
  Sender: FDA-Public Use
  Company Number: FR-JNJFOC-20111207162

PATIENT

DRUGS (24)
  1. DOXORUBICIN HCL [Suspect]
     Indication: DIFFUSE LARGE B-CELL LYMPHOMA
     Dosage: CYCLE 4
     Route: 042
  2. CYCLOPHOSPHAMIDE [Suspect]
     Route: 065
  3. CYCLOPHOSPHAMIDE [Suspect]
     Route: 065
  4. METHOTREXATE [Suspect]
     Route: 037
  5. DOXORUBICIN HCL [Suspect]
     Dosage: CYCLE 1
     Route: 042
  6. RITUXIMAB [Suspect]
     Indication: DIFFUSE LARGE B-CELL LYMPHOMA
     Route: 065
  7. PREDNISONE TAB [Suspect]
     Route: 065
  8. METHOTREXATE [Suspect]
     Indication: PROPHYLAXIS
     Route: 037
  9. METHOTREXATE [Suspect]
     Route: 037
  10. VINCRISTINE [Suspect]
     Route: 065
  11. DOXORUBICIN HCL [Suspect]
     Dosage: CYCLE 3
     Route: 042
  12. DOXORUBICIN HCL [Suspect]
     Dosage: CYCLE 2
     Route: 042
  13. VINCRISTINE [Suspect]
     Indication: DIFFUSE LARGE B-CELL LYMPHOMA
     Route: 065
  14. PREDNISONE TAB [Suspect]
     Route: 065
  15. PREDNISONE TAB [Suspect]
     Route: 065
  16. RITUXIMAB [Suspect]
     Route: 065
  17. PREDNISONE TAB [Suspect]
     Indication: DIFFUSE LARGE B-CELL LYMPHOMA
     Route: 065
  18. RITUXIMAB [Suspect]
     Route: 065
  19. METHOTREXATE [Suspect]
     Route: 037
  20. RITUXIMAB [Suspect]
     Route: 065
  21. CYCLOPHOSPHAMIDE [Suspect]
     Indication: DIFFUSE LARGE B-CELL LYMPHOMA
     Route: 065
  22. CYCLOPHOSPHAMIDE [Suspect]
     Route: 065
  23. VINCRISTINE [Suspect]
     Route: 065
  24. VINCRISTINE [Suspect]
     Route: 065

REACTIONS (1)
  - LUNG NEOPLASM MALIGNANT [None]
